FAERS Safety Report 8933041 (Version 1)
Quarter: 2012Q4

REPORT INFORMATION
  Report Type: 
  Country: ES (occurrence: ES)
  Receive Date: 20121129
  Receipt Date: 20121129
  Transmission Date: 20130627
  Serious: Yes (Other)
  Sender: FDA-Public Use
  Company Number: ES-AMGEN-ESPSP2012074736

PATIENT
  Sex: Female

DRUGS (1)
  1. PROLIA [Suspect]
     Indication: PRODUCT USED FOR UNKNOWN INDICATION
     Dosage: UNK
     Dates: start: 201204

REACTIONS (4)
  - Device dislocation [Unknown]
  - Fibrosis [Recovering/Resolving]
  - Keratitis [Recovering/Resolving]
  - Corneal oedema [Recovering/Resolving]
